FAERS Safety Report 8505591-7 (Version None)
Quarter: 2012Q3

REPORT INFORMATION
  Report Type: 
  Country: None (occurrence: None)
  Receive Date: 20120712
  Receipt Date: 20120702
  Transmission Date: 20120928
  Serious: Yes (Hospitalization)
  Sender: FDA-Public Use
  Company Number: JP-TEVA-346425ISR

PATIENT
  Age: 78 Year
  Sex: Female

DRUGS (10)
  1. RIFAMPICIN [Suspect]
     Indication: DISSEMINATED TUBERCULOSIS
     Dosage: 450MG
     Route: 065
  2. RIFAMPICIN [Suspect]
     Indication: MENINGITIS TUBERCULOUS
     Dosage: 450MG
     Route: 065
  3. PYRAZINAMIDE [Suspect]
     Indication: DISSEMINATED TUBERCULOSIS
     Dosage: 1000MG
     Route: 065
  4. ISONIAZID [Suspect]
     Indication: DISSEMINATED TUBERCULOSIS
     Dosage: 200MG
     Route: 065
  5. PYRAZINAMIDE [Suspect]
     Indication: MENINGITIS TUBERCULOUS
     Dosage: 1000MG
     Route: 065
  6. PREDNISOLONE [Suspect]
     Indication: MENINGITIS TUBERCULOUS
     Dosage: 40MG
     Route: 065
  7. PREDNISOLONE [Suspect]
     Indication: DISSEMINATED TUBERCULOSIS
     Dosage: 40MG
     Route: 065
  8. ETHAMBUTOL HYDROCHLORIDE [Suspect]
     Indication: MENINGITIS TUBERCULOUS
     Dosage: 500MG
     Route: 065
  9. ISONIAZID [Suspect]
     Indication: MENINGITIS TUBERCULOUS
     Dosage: 200MG
     Route: 065
  10. ETHAMBUTOL HYDROCHLORIDE [Suspect]
     Indication: DISSEMINATED TUBERCULOSIS
     Dosage: 500MG
     Route: 065

REACTIONS (2)
  - PARADOXICAL DRUG REACTION [None]
  - CEREBRAL INFARCTION [None]
